FAERS Safety Report 6984794-7 (Version None)
Quarter: 2010Q3

REPORT INFORMATION
  Report Type: 
  Country: None (occurrence: None)
  Receive Date: 20100914
  Receipt Date: 20100914
  Transmission Date: 20110219
  Serious: Yes (Life-Threatening, Hospitalization)
  Sender: FDA-Public Use
  Company Number: None

PATIENT
  Age: 44 Year
  Sex: Female

DRUGS (2)
  1. GIANVI 3 MG / 0.02 MG TEVA PHARMACEUTICALS USA [Suspect]
     Indication: MENSTRUAL DISORDER
     Dosage: ONE DAILY PO
     Route: 048
     Dates: start: 20100601, end: 20100907
  2. GIANVI 3 MG/ 0.02 MG TEVA PHARMACEUTICALS USA [Suspect]

REACTIONS (7)
  - ASTHENIA [None]
  - HAIR TEXTURE ABNORMAL [None]
  - MALAISE [None]
  - MENORRHAGIA [None]
  - METRORRHAGIA [None]
  - PRODUCT SUBSTITUTION ISSUE [None]
  - RESTLESS LEGS SYNDROME [None]
